FAERS Safety Report 23212955 (Version 1)
Quarter: 2023Q4

REPORT INFORMATION
  Report Type: Spontaneous
  Country: US (occurrence: None)
  Receive Date: 20231121
  Receipt Date: 20231121
  Transmission Date: 20240110
  Serious: Yes (Hospitalization, Disabling, Other)
  Sender: FDA-Public Use
  Company Number: None

PATIENT
  Age: 60 Year
  Sex: Female
  Weight: 98.1 kg

DRUGS (5)
  1. MONTELUKAST SODIUM [Suspect]
     Active Substance: MONTELUKAST SODIUM
     Indication: Asthma
     Dosage: OTHER QUANTITY : 1 TABLET(S);?FREQUENCY : DAILY;?
     Route: 048
     Dates: start: 20230805, end: 20230902
  2. TRELEGY ELLIPTA [Concomitant]
     Active Substance: FLUTICASONE FUROATE\UMECLIDINIUM BROMIDE\VILANTEROL TRIFENATATE
  3. BUDESONIDE [Concomitant]
     Active Substance: BUDESONIDE
  4. VITAMIN D [Concomitant]
     Active Substance: VITAMIN D NOS
  5. MELATONIN [Concomitant]
     Active Substance: MELATONIN

REACTIONS (11)
  - Economic problem [None]
  - Cough [None]
  - Wheezing [None]
  - Urinary tract infection [None]
  - Rash [None]
  - Fungal infection [None]
  - Fatigue [None]
  - Chromaturia [None]
  - Pruritus [None]
  - Alanine aminotransferase increased [None]
  - Aspartate aminotransferase increased [None]

NARRATIVE: CASE EVENT DATE: 20230829
